FAERS Safety Report 8519045-5 (Version None)
Quarter: 2012Q3

REPORT INFORMATION
  Report Type: 
  Country: None (occurrence: None)
  Receive Date: 20120718
  Receipt Date: 20120710
  Transmission Date: 20120928
  Serious: Yes (Death, Hospitalization, Other)
  Sender: FDA-Public Use
  Company Number: PHHY2011FR07426

PATIENT
  Age: 20 Year
  Sex: Female

DRUGS (7)
  1. RIFAMPICIN [Concomitant]
     Indication: PULMONARY TUBERCULOSIS
  2. ETHAMBUTOL HYDROCHLORIDE [Concomitant]
     Indication: PULMONARY TUBERCULOSIS
     Dosage: UNK
  3. PREDNISOLONE [Concomitant]
     Dosage: UNK
  4. PYRAZINAMIDE [Suspect]
     Indication: PULMONARY TUBERCULOSIS
  5. TACROLIMUS [Concomitant]
  6. OFLOXACIN [Concomitant]
     Indication: PULMONARY TUBERCULOSIS
  7. ISONIAZID [Concomitant]
     Indication: PULMONARY TUBERCULOSIS
     Dosage: UNK

REACTIONS (6)
  - HEPATIC ENCEPHALOPATHY [None]
  - ACUTE HEPATIC FAILURE [None]
  - SHOCK HAEMORRHAGIC [None]
  - SEPSIS [None]
  - HEPATITIS [None]
  - JAUNDICE [None]
